FAERS Safety Report 6274015-5 (Version None)
Quarter: 2009Q3

REPORT INFORMATION
  Report Type: 
  Country: None (occurrence: None)
  Receive Date: 20090720
  Receipt Date: 20090710
  Transmission Date: 20100115
  Serious: Yes (Other)
  Sender: FDA-Public Use
  Company Number: DE-PFIZER INC-2009238709

PATIENT
  Age: 81 Year

DRUGS (1)
  1. SORTIS [Suspect]
     Dosage: 20 MG, UNK

REACTIONS (1)
  - POLYNEUROPATHY [None]
